FAERS Safety Report 10495903 (Version 1)
Quarter: 2014Q4

REPORT INFORMATION
  Report Type: Spontaneous
  Country: BR (occurrence: BR)
  Receive Date: 20141003
  Receipt Date: 20141003
  Transmission Date: 20150528
  Serious: Yes (Hospitalization, Other)
  Sender: FDA-Public Use
  Company Number: BR-009507513-1410BRA000946

PATIENT
  Age: 30 Year
  Sex: Female
  Weight: 37 kg

DRUGS (1)
  1. MERCILON [Suspect]
     Active Substance: DESOGESTREL\ETHINYL ESTRADIOL
     Indication: CONTRACEPTION
     Dosage: 1 DF, QD
     Route: 048
     Dates: start: 2002, end: 2009

REACTIONS (9)
  - Surgery [Recovered/Resolved]
  - Caesarean section [Recovered/Resolved]
  - Infertility [Recovered/Resolved]
  - Withdrawal bleed [Recovered/Resolved]
  - Scapula fracture [Recovered/Resolved]
  - Inappropriate schedule of drug administration [Unknown]
  - Fall [Recovered/Resolved]
  - Maternal exposure before pregnancy [Unknown]
  - Complication of delivery [Recovered/Resolved]

NARRATIVE: CASE EVENT DATE: 2002
